FAERS Safety Report 7961729-1 (Version None)
Quarter: 2011Q4

REPORT INFORMATION
  Report Type: 
  Country: None (occurrence: None)
  Receive Date: 20111207
  Receipt Date: 20111129
  Transmission Date: 20120403
  Serious: Yes (Hospitalization, Other)
  Sender: FDA-Public Use
  Company Number: CN-PFIZER INC-2011294593

PATIENT
  Age: 52 Year
  Sex: Male

DRUGS (7)
  1. ATORVASTATIN CALCIUM [Interacting]
     Indication: HYPERLIPIDAEMIA
     Dosage: UNK
     Dates: start: 20100516, end: 20100524
  2. HEPARIN [Concomitant]
     Dosage: UNK
     Dates: start: 20100516
  3. AMIODARONE HCL [Interacting]
     Dosage: 0.2 G, 3X/DAY
     Route: 048
     Dates: start: 20100521, end: 20100527
  4. ASPIRIN [Concomitant]
     Dosage: UNK
     Dates: start: 20100516
  5. AMIODARONE HYDROCHLORIDE [Interacting]
     Indication: VENTRICULAR TACHYCARDIA
     Dosage: UNK
     Route: 042
     Dates: start: 20100517
  6. CLOPIDOGREL [Concomitant]
     Dosage: UNK
     Dates: start: 20100516
  7. AMIODARONE HCL [Suspect]
     Indication: VENTRICULAR TACHYCARDIA
     Dosage: 0.2 G, EVERY 6 HOURS
     Route: 048
     Dates: start: 20100517, end: 20100520

REACTIONS (2)
  - HEPATIC FUNCTION ABNORMAL [None]
  - DRUG INTERACTION [None]
